FAERS Safety Report 8791215 (Version 1)
Quarter: 2012Q4

REPORT INFORMATION
  Report Type: Spontaneous
  Country: US (occurrence: None)
  Receive Date: 20120913
  Receipt Date: 20120913
  Transmission Date: 20130627
  Serious: Yes (Other)
  Sender: FDA-Public Use
  Company Number: None

PATIENT
  Age: 58 Year
  Sex: Female
  Weight: 83.46 kg

DRUGS (1)
  1. VICODIN [Suspect]

REACTIONS (3)
  - Wheezing [None]
  - Dyspnoea [None]
  - Erythema [None]
